FAERS Safety Report 11131118 (Version 2)
Quarter: 2015Q2

REPORT INFORMATION
  Report Type: Spontaneous
  Country: GB (occurrence: GB)
  Receive Date: 20150522
  Receipt Date: 20150622
  Transmission Date: 20150821
  Serious: Yes (Other)
  Sender: FDA-Public Use
  Company Number: GB-BRISTOL-MYERS SQUIBB COMPANY-BMS-2015-030703

PATIENT
  Age: 48 Year
  Sex: Male

DRUGS (5)
  1. DARUNAVIR [Suspect]
     Active Substance: DARUNAVIR
     Indication: HIV INFECTION
     Route: 065
  2. ADCORTYL [Suspect]
     Active Substance: TRIAMCINOLONE ACETONIDE
     Indication: TRIGGER FINGER
     Route: 058
     Dates: start: 20150319, end: 20150319
  3. RITONAVIR. [Suspect]
     Active Substance: RITONAVIR
     Dosage: 3 MG, UNK
     Route: 065
  4. TRUVADA [Suspect]
     Active Substance: EMTRICITABINE\TENOFOVIR DISOPROXIL FUMARATE
     Indication: HIV INFECTION
     Route: 065
  5. RITONAVIR. [Suspect]
     Active Substance: RITONAVIR
     Indication: HIV INFECTION
     Dosage: 3 MG, UNK
     Route: 065

REACTIONS (3)
  - Off label use [Unknown]
  - Drug interaction [Recovering/Resolving]
  - Blood HIV RNA increased [Recovering/Resolving]

NARRATIVE: CASE EVENT DATE: 20150422
